FAERS Safety Report 11580669 (Version 1)
Quarter: 2015Q3

REPORT INFORMATION
  Report Type: Report from Study
  Country: US (occurrence: US)
  Receive Date: 20150930
  Receipt Date: 20150930
  Transmission Date: 20151125
  Serious: Yes (Other)
  Sender: FDA-Public Use
  Company Number: PHEH2015US019053

PATIENT
  Age: 34 Year
  Sex: Male

DRUGS (1)
  1. TOBI PODHALER [Suspect]
     Active Substance: TOBRAMYCIN
     Indication: CYSTIC FIBROSIS
     Dosage: 4 CAPSULES, BID
     Route: 048
     Dates: start: 201506

REACTIONS (2)
  - Lung infection [Unknown]
  - Depressed mood [Unknown]

NARRATIVE: CASE EVENT DATE: 201507
